FAERS Safety Report 7398307-1 (Version None)
Quarter: 2011Q2

REPORT INFORMATION
  Report Type: 
  Country: None (occurrence: None)
  Receive Date: 20110406
  Receipt Date: 20110325
  Transmission Date: 20111010
  Serious: Yes (Other)
  Sender: FDA-Public Use
  Company Number: US-BAYER-2011-026295

PATIENT
  Sex: Female

DRUGS (1)
  1. AVELOX [Suspect]
     Dosage: 400 MG, UNK
     Dates: start: 20110225

REACTIONS (9)
  - DIZZINESS [None]
  - ANAPHYLACTIC REACTION [None]
  - PRURITUS [None]
  - FATIGUE [None]
  - CONCUSSION [None]
  - HEAD INJURY [None]
  - AMNESIA [None]
  - HEADACHE [None]
  - FALL [None]
